FAERS Safety Report 24249313 (Version 1)
Quarter: 2024Q3

REPORT INFORMATION
  Report Type: Spontaneous
  Country: US (occurrence: None)
  Receive Date: 20240823
  Receipt Date: 20240823
  Transmission Date: 20241017
  Serious: Yes (Life-Threatening, Hospitalization)
  Sender: Public
  Company Number: None

PATIENT
  Age: 31 Year
  Sex: Female

DRUGS (1)
  1. ZURZUVAE [Suspect]
     Active Substance: ZURANOLONE
     Dosage: 50 MG DAILY ORAL
     Route: 048

REACTIONS (11)
  - Dizziness [None]
  - Fatigue [None]
  - Muscular weakness [None]
  - Dizziness [None]
  - Tremor [None]
  - Muscle spasms [None]
  - Muscle spasms [None]
  - Hyperhidrosis [None]
  - Nausea [None]
  - Amnesia [None]
  - Speech disorder [None]

NARRATIVE: CASE EVENT DATE: 20240819
